FAERS Safety Report 7530614-1 (Version None)
Quarter: 2011Q2

REPORT INFORMATION
  Report Type: 
  Country: None (occurrence: None)
  Receive Date: 20110607
  Receipt Date: 20110527
  Transmission Date: 20111010
  Serious: Yes (Hospitalization)
  Sender: FDA-Public Use
  Company Number: AU-JNJFOC-20110203297

PATIENT
  Sex: Female
  Weight: 110 kg

DRUGS (18)
  1. FOLIC ACID [Concomitant]
     Route: 048
     Dates: start: 20070713
  2. SERTRALINE HYDROCHLORIDE [Concomitant]
     Route: 048
     Dates: start: 20090216
  3. LYCLEAR [Concomitant]
     Route: 061
     Dates: start: 20100602
  4. FEXOFENADINE HCL [Concomitant]
     Route: 048
     Dates: start: 20040101
  5. CODALGIN PLUS [Concomitant]
     Route: 048
     Dates: start: 20050101
  6. METHOTREXATE [Concomitant]
     Route: 048
     Dates: start: 20100709
  7. METHOTREXATE [Suspect]
     Indication: RHEUMATOID ARTHRITIS
     Route: 048
     Dates: start: 20060714, end: 20080522
  8. ACETAMINOPHEN [Concomitant]
     Route: 048
     Dates: start: 19820101
  9. LEVLEN ED [Concomitant]
     Route: 048
     Dates: start: 20000101
  10. GOLIMUMAB [Suspect]
     Route: 058
     Dates: start: 20060713
  11. PANADOL OSTEO [Concomitant]
     Route: 048
     Dates: start: 20080327
  12. CELEBREX [Concomitant]
     Route: 048
     Dates: start: 20071004
  13. ALBUTEROL [Concomitant]
     Route: 055
     Dates: start: 20100129
  14. GOLIMUMAB [Suspect]
     Indication: RHEUMATOID ARTHRITIS
     Route: 058
     Dates: start: 20110120
  15. SERETIDE [Concomitant]
     Route: 055
     Dates: start: 20080327
  16. PANADEINE FORTE [Concomitant]
     Route: 048
     Dates: start: 20090219
  17. DERMAIDE [Concomitant]
     Route: 061
     Dates: start: 20100701
  18. METHOTREXATE [Concomitant]
     Route: 048
     Dates: start: 20080613, end: 20080829

REACTIONS (1)
  - PNEUMONIA [None]
